FAERS Safety Report 7820437-8 (Version None)
Quarter: 2011Q4

REPORT INFORMATION
  Report Type: 
  Country: None (occurrence: None)
  Receive Date: 20111018
  Receipt Date: 20111006
  Transmission Date: 20120403
  Serious: Yes (Other)
  Sender: FDA-Public Use
  Company Number: GB-ROCHE-1004858

PATIENT
  Age: 87 Year
  Sex: Female

DRUGS (8)
  1. FUROSEMIDE [Concomitant]
  2. FERROUS FUMARATE [Concomitant]
  3. LUCENTIS [Suspect]
     Indication: AGE-RELATED MACULAR DEGENERATION
     Route: 050
     Dates: start: 20110501
  4. WARFARIN SODIUM [Concomitant]
  5. CALCITAB [Concomitant]
  6. DIGOXIN [Concomitant]
  7. TOBRADEX [Concomitant]
  8. LACRI-LUBE (UNITED KINGDOM) [Concomitant]

REACTIONS (2)
  - INTERNATIONAL NORMALISED RATIO INCREASED [None]
  - LIVER DISORDER [None]
